FAERS Safety Report 8984570 (Version 1)
Quarter: 2012Q4

REPORT INFORMATION
  Report Type: 
  Country: IE (occurrence: IE)
  Receive Date: 20121226
  Receipt Date: 20121226
  Transmission Date: 20130627
  Serious: Yes (Death, Hospitalization)
  Sender: FDA-Public Use
  Company Number: IE-MPIJNJ-2012-08941

PATIENT

DRUGS (6)
  1. VELCADE [Suspect]
     Indication: MULTIPLE MYELOMA
     Dosage: 1.5 mg/m2, UNK
     Route: 042
     Dates: start: 20090310, end: 20121023
  2. VALTREX [Concomitant]
  3. ZOTON [Concomitant]
  4. DEXAMETHASONE                      /00016002/ [Concomitant]
  5. DIOVAN [Concomitant]
  6. LYRICA [Concomitant]

REACTIONS (1)
  - Death [Fatal]
